FAERS Safety Report 18548944 (Version 1)
Quarter: 2020Q4

REPORT INFORMATION
  Report Type: Spontaneous
  Country: US (occurrence: US)
  Receive Date: 20201125
  Receipt Date: 20201125
  Transmission Date: 20210114
  Serious: No
  Sender: FDA-Public Use
  Company Number: US-ASTRAZENECA-2020SF49126

PATIENT
  Age: 718 Month
  Sex: Male
  Weight: 67.6 kg

DRUGS (3)
  1. METFORMIN [Concomitant]
     Active Substance: METFORMIN HYDROCHLORIDE
     Indication: GLYCOSYLATED HAEMOGLOBIN INCREASED
     Route: 048
  2. GLIPIZIDE. [Concomitant]
     Active Substance: GLIPIZIDE
     Indication: GLYCOSYLATED HAEMOGLOBIN INCREASED
     Route: 048
  3. BYDUREON [Suspect]
     Active Substance: EXENATIDE
     Indication: GLYCOSYLATED HAEMOGLOBIN INCREASED
     Route: 058
     Dates: start: 20201015

REACTIONS (4)
  - Expired device used [Unknown]
  - Weight decreased [Unknown]
  - Device dispensing error [Unknown]
  - Intentional device misuse [Unknown]

NARRATIVE: CASE EVENT DATE: 202010
